FAERS Safety Report 5017514-6 (Version None)
Quarter: 2006Q2

REPORT INFORMATION
  Report Type: 
  Country: None (occurrence: None)
  Receive Date: 20060601
  Receipt Date: 20060601
  Transmission Date: 20061013
  Serious: Yes (Other)
  Sender: FDA-Public Use
  Company Number: None

PATIENT
  Age: 54 Year
  Sex: Female
  Weight: 53.5244 kg

DRUGS (7)
  1. CELEBREX [Suspect]
     Indication: PAIN
     Dosage: 400MG  TWICE DAILY  ORALLY
     Route: 048
     Dates: start: 20050301, end: 20060426
  2. ZOLOFT [Concomitant]
  3. PROTONIX [Concomitant]
  4. ULTRACET [Concomitant]
  5. FLEXERIL [Concomitant]
  6. HYDROCODONE [Concomitant]
  7. AMBIEN [Concomitant]

REACTIONS (4)
  - APHONIA [None]
  - BARRETT'S OESOPHAGUS [None]
  - GASTRITIS EROSIVE [None]
  - MELAENA [None]
